FAERS Safety Report 14957573 (Version 3)
Quarter: 2018Q3

REPORT INFORMATION
  Report Type: Spontaneous
  Country: US (occurrence: US)
  Receive Date: 20180531
  Receipt Date: 20180904
  Transmission Date: 20181010
  Serious: Yes (Death, Hospitalization)
  Sender: FDA-Public Use
  Company Number: US-JNJFOC-20180541390

PATIENT
  Age: 86 Year
  Sex: Male

DRUGS (27)
  1. ZYTIGA [Suspect]
     Active Substance: ABIRATERONE ACETATE
     Indication: PRODUCT USED FOR UNKNOWN INDICATION
     Dosage: STRENGTH 250 MG EVERY MORNING ALL AT ONCE AT 5 A.M.
     Route: 048
     Dates: start: 20170819, end: 20180425
  2. LUPRON [Concomitant]
     Active Substance: LEUPROLIDE ACETATE
     Route: 065
     Dates: start: 20180415
  3. XARELTO [Concomitant]
     Active Substance: RIVAROXABAN
     Indication: ANTICOAGULANT THERAPY
     Dosage: 20 MG TABLET
     Route: 065
     Dates: start: 20170809
  4. HYDROCODONE [Concomitant]
     Active Substance: HYDROCODONE
     Dosage: AT 5 A.M. (7.5 MG TO 325 MG)
     Route: 065
  5. VENTOLIN [Concomitant]
     Active Substance: ALBUTEROL SULFATE
     Dosage: 7: 00 A.M.
     Route: 065
  6. PREDNISONE. [Concomitant]
     Active Substance: PREDNISONE
     Dosage: 1: 00 P.M. (BREAKFAST AND LUNCH)
     Route: 065
     Dates: start: 20170823
  7. DIGOXIN. [Concomitant]
     Active Substance: DIGOXIN
     Indication: CARDIAC DISORDER
     Dosage: EVERY MORNING
     Route: 065
     Dates: start: 20170810
  8. VENTOLIN HFA [Concomitant]
     Active Substance: ALBUTEROL SULFATE
     Dosage: 2 PUFFS UPTO 3 TIMES AS NEEDED IN A DAY
     Route: 065
     Dates: start: 20170801
  9. VITAMIN D [Concomitant]
     Active Substance: CHOLECALCIFEROL
     Dosage: AT 6.00 P.M
     Route: 065
  10. VITAMIN D [Concomitant]
     Active Substance: CHOLECALCIFEROL
     Dosage: WHITE TABLET
     Route: 065
     Dates: start: 20171102
  11. PREDNISONE. [Concomitant]
     Active Substance: PREDNISONE
     Dosage: 7: 00 A.M. (BREAKFAST AND LUNCH)
     Route: 065
  12. AMLODIPINE BESYLATE. [Concomitant]
     Active Substance: AMLODIPINE BESYLATE
     Indication: HYPERTENSION
     Dosage: ONCE A DAY AT BEDTIME
     Route: 065
     Dates: start: 20170906
  13. AMIODARONE HYDROCHLORIDE. [Concomitant]
     Active Substance: AMIODARONE HYDROCHLORIDE
     Dosage: 1 WHITE TABLET 1 TIME A DAY AT BEDTIME
     Route: 065
  14. CALCIUM [Concomitant]
     Active Substance: CALCIUM
     Dosage: AT 6.00 P.M
     Route: 065
  15. CALCIUM [Concomitant]
     Active Substance: CALCIUM
     Dosage: 500 PLUS; 1 BLUE TABLET
     Route: 065
     Dates: start: 20170722
  16. LUPRON [Concomitant]
     Active Substance: LEUPROLIDE ACETATE
     Route: 065
     Dates: start: 20170921
  17. PANTOPRAZOLE [Concomitant]
     Active Substance: PANTOPRAZOLE
     Dosage: AT BEDTIME
     Route: 065
  18. ELIQUIS [Concomitant]
     Active Substance: APIXABAN
     Dosage: AT 6.00 P.M
     Route: 065
  19. ELIQUIS [Concomitant]
     Active Substance: APIXABAN
     Dosage: AT 7.00 A.M
     Route: 065
  20. FUROSEMIDE. [Concomitant]
     Active Substance: FUROSEMIDE
     Indication: DIURETIC THERAPY
     Dosage: IN THE MORNING. WHITE TABLET A DAY
     Route: 065
     Dates: start: 20170810
  21. VESICARE [Concomitant]
     Active Substance: SOLIFENACIN SUCCINATE
     Indication: POLLAKIURIA
     Dosage: 20 MG TABLET
     Route: 065
     Dates: start: 20180104
  22. HYDROCODONE [Concomitant]
     Active Substance: HYDROCODONE
     Dosage: AT 1 P.M  (BREAKFAST AND LUNCH)
     Route: 065
  23. HYDROCODONE [Concomitant]
     Active Substance: HYDROCODONE
     Dosage: AT BEDTIME (7.5 MG TO 325 MG)
     Route: 065
  24. POTASSIUM CHLORIDE. [Concomitant]
     Active Substance: POTASSIUM CHLORIDE
     Dosage: 1 DARK BLUE CAPSULE A DAY IN THE EVENING
     Route: 065
     Dates: start: 20170809
  25. LUPRON [Concomitant]
     Active Substance: LEUPROLIDE ACETATE
     Route: 065
     Dates: start: 20180104
  26. HYDROCODONE/ACETAMINOPHEN [Concomitant]
     Active Substance: ACETAMINOPHEN\HYDROCODONE
     Dosage: (7 MG TO 325 MG); WHITE OBLONG TABLET
     Route: 065
     Dates: start: 20170715
  27. LUPRON [Concomitant]
     Active Substance: LEUPROLIDE ACETATE
     Route: 065
     Dates: start: 20170622

REACTIONS (1)
  - Pneumonia [Fatal]

NARRATIVE: CASE EVENT DATE: 20180423
